FAERS Safety Report 25525742 (Version 1)
Quarter: 2025Q3

REPORT INFORMATION
  Report Type: Spontaneous
  Country: AU (occurrence: AU)
  Receive Date: 20250707
  Receipt Date: 20250707
  Transmission Date: 20251020
  Serious: Yes (Death, Other)
  Sender: PURDUE
  Company Number: AU-NAPPMUNDI-GBR-2025-0125862

PATIENT
  Sex: Female

DRUGS (1)
  1. NORSPAN [Suspect]
     Active Substance: BUPRENORPHINE
     Indication: Product used for unknown indication
     Route: 062

REACTIONS (3)
  - Death [Fatal]
  - Product prescribing issue [Unknown]
  - Wrong technique in product usage process [Unknown]
